FAERS Safety Report 6115894-1 (Version None)
Quarter: 2009Q1

REPORT INFORMATION
  Report Type: 
  Country: None (occurrence: None)
  Receive Date: 20090311
  Receipt Date: 20090224
  Transmission Date: 20090719
  Serious: Yes (Hospitalization, Other)
  Sender: FDA-Public Use
  Company Number: CLOF-1000448

PATIENT
  Age: 75 Year
  Sex: Male

DRUGS (27)
  1. CLOFARABINE OR PLACEBO           (CODE NOT BROKEN) [Suspect]
     Indication: ACUTE MYELOID LEUKAEMIA
     Dosage: BLINDED, INFORMATION WITHHELD.
     Dates: start: 20081020, end: 20081025
  2. CYTARABINE [Suspect]
     Indication: ACUTE MYELOID LEUKAEMIA
     Dosage: 1 G/M2, QD,
     Dates: start: 20081020, end: 20081025
  3. TOPROL       (METOPROLOL SUCCINATE) ORAL SOLUTION [Concomitant]
  4. ZOFRAN           (ONDANSETRON HYDROCHLORIDE) INTRAVENOUS INFUSION [Concomitant]
  5. DEXAMETHASONE (DEXAMETHASONE SODIUM SUCCINATE) ORAL SOLUTION [Concomitant]
  6. SODIUM BICARBONATE IN PLASTIC CONTAINER [Concomitant]
  7. DAPTOMYCIN (DAPTOMYCIN) INTRAVENOUS INFUSION [Concomitant]
  8. FLUCONAZOLE (FLUCONAZOLE) ORAL SOLUTION [Concomitant]
  9. VALTREX (VALACICLOVIR HYDROCHLORIDE) ORAL SOLUTION [Concomitant]
  10. NORVASC (AMLODIPINE BESILATE) ORAL SOLUTION [Concomitant]
  11. INSULIN (INSULIN HUMAN) [Concomitant]
  12. FLOMAX (TAMSULOSIN HYDROCHLORIDE) ORAL SOLUTION [Concomitant]
  13. VORICONAZOLE (VORICONAZOLE) ORAL SOLUTION [Concomitant]
  14. MICAFUNGIN (MICAFUNGIN) INTRAVENOUS INFUSION [Concomitant]
  15. MAGNESIUM SULFATE (MAGNESIUM SULFATE) INTRAVENOUS INFUSION [Concomitant]
  16. ALDACTONE (SPIRONOLACTONE) ORAL SOLUTION [Concomitant]
  17. MEROPENEM (MEROPENEM) INTRAVENOUS INFUSION [Concomitant]
  18. LASIX (FUROSEMIDE SODIUM) INTRAVENOUS INFUSION [Concomitant]
  19. POTASSIUM (POTASSIUM GLUCONATE) ORAL SOLUTION [Concomitant]
  20. ACYCLOVIR (ACICLOVIR) ORAL SOLUTION [Concomitant]
  21. VANCOMYCIN (VANCOMYCIN HYDROCHLORIDE) INTRAVENOUS INFUSION [Concomitant]
  22. FLAGYL (METRONIDAZOLE BENZOATE) INTRAVENOUS INFUSION [Concomitant]
  23. CEFEPIME (CEFEPIME) INTRAVENOUS INFUSION [Concomitant]
  24. ALBUTEROL (SALBUTAMOL SULFATE) [Concomitant]
  25. LEVAQUIN (LEVOFLOXACIN) ORAL SOLUTION [Concomitant]
  26. ALLOPURINOL (ALLOPURINOL) ORAL SOLUTION [Concomitant]
  27. LOPRESSOR (METOPROLOL TARTRATE) ORAL SOLUTION [Concomitant]

REACTIONS (20)
  - ALANINE AMINOTRANSFERASE INCREASED [None]
  - ASPARTATE AMINOTRANSFERASE INCREASED [None]
  - BLOOD BILIRUBIN INCREASED [None]
  - BLOOD CALCIUM DECREASED [None]
  - BLOOD CULTURE POSITIVE [None]
  - BLOOD SODIUM DECREASED [None]
  - COLITIS [None]
  - ENDOCARDITIS [None]
  - ENTEROCOCCAL BACTERAEMIA [None]
  - FLUID OVERLOAD [None]
  - GASTROINTESTINAL HAEMORRHAGE [None]
  - HAEMODIALYSIS [None]
  - HYPOKALAEMIA [None]
  - HYPOXIA [None]
  - ILEUS [None]
  - PANCYTOPENIA [None]
  - RENAL FAILURE ACUTE [None]
  - SEPSIS [None]
  - STAPHYLOCOCCAL INFECTION [None]
  - TACHYPNOEA [None]
